FAERS Safety Report 14586076 (Version 5)
Quarter: 2018Q3

REPORT INFORMATION
  Report Type: Spontaneous
  Country: DE (occurrence: DE)
  Receive Date: 20180301
  Receipt Date: 20180718
  Transmission Date: 20181010
  Serious: Yes (Hospitalization, Other)
  Sender: FDA-Public Use
  Company Number: DE-HORIZON-BUP-0009-2018

PATIENT
  Age: 11 Year
  Sex: Female

DRUGS (3)
  1. SODIUM BENZOATE [Concomitant]
     Active Substance: SODIUM BENZOATE
  2. AMMONAPS TABLET [Suspect]
     Active Substance: SODIUM PHENYLBUTYRATE
     Indication: UREA CYCLE DISORDER
     Dosage: START: 8 MG/DAY; INCREASED TO 12 MG/DAY; THEN 10 G/DAY
     Dates: end: 20180311
  3. L?ARGININ [Concomitant]

REACTIONS (9)
  - Drug ineffective [Unknown]
  - Abdominal pain upper [Unknown]
  - Nausea [Unknown]
  - Hallucination [Unknown]
  - Product quality issue [Unknown]
  - Vomiting [Unknown]
  - Headache [Unknown]
  - Dizziness [Unknown]
  - Hyperammonaemia [Unknown]

NARRATIVE: CASE EVENT DATE: 20180226
